FAERS Safety Report 11411998 (Version 1)
Quarter: 2015Q3

REPORT INFORMATION
  Report Type: Spontaneous
  Country: US (occurrence: US)
  Receive Date: 20150821
  Receipt Date: 20150821
  Transmission Date: 20151125
  Serious: No
  Sender: FDA-Public Use
  Company Number: US-ELI_LILLY_AND_COMPANY-US201109002919

PATIENT
  Sex: Male

DRUGS (4)
  1. HUMULIN N [Suspect]
     Active Substance: INSULIN HUMAN
     Dosage: 14 U, EACH EVENING
     Dates: start: 20110723
  2. HUMULIN N [Suspect]
     Active Substance: INSULIN HUMAN
     Indication: TYPE 2 DIABETES MELLITUS
     Dosage: 24 U, EACH MORNING
     Dates: start: 20110723
  3. HUMULIN N [Suspect]
     Active Substance: INSULIN HUMAN
     Dosage: 14 U, EACH EVENING
     Dates: start: 20110723
  4. HUMULIN N [Suspect]
     Active Substance: INSULIN HUMAN
     Dosage: 24 U, EACH MORNING
     Dates: start: 20110723

REACTIONS (5)
  - Incorrect dose administered [Unknown]
  - Blood glucose increased [Unknown]
  - Blood glucose decreased [Unknown]
  - Weight decreased [Unknown]
  - Fear [Unknown]
